FAERS Safety Report 7385495 (Version 3)
Quarter: 2018Q4

REPORT INFORMATION
  Report Type: Spontaneous
  Country: GB (occurrence: GB)
  Receive Date: 20100512
  Receipt Date: 20181109
  Transmission Date: 20190205
  Serious: Yes (Life-Threatening, Hospitalization, Other)
  Sender: FDA-Public Use
  Company Number: GB-ELI_LILLY_AND_COMPANY-GB201004007672

PATIENT
  Sex: Female

DRUGS (6)
  1. TRIMETHOPRIM. [Concomitant]
     Active Substance: TRIMETHOPRIM
  2. FLUOXETINE [Suspect]
     Active Substance: FLUOXETINE HYDROCHLORIDE
     Indication: DEPRESSED MOOD
     Dosage: 20 MG, UNKNOWN
     Route: 048
     Dates: start: 20100321, end: 20100326
  3. FRUSEMIDE ALMUS [Concomitant]
  4. BENDROFLUAZIDE [Concomitant]
     Active Substance: BENDROFLUMETHIAZIDE
  5. CANDESARTAN. [Concomitant]
     Active Substance: CANDESARTAN
  6. CO-DYDRAMOL [Concomitant]
     Active Substance: ACETAMINOPHEN\DIHYDROCODEINE

REACTIONS (9)
  - Acute fatty liver of pregnancy [Recovering/Resolving]
  - Dehydration [Recovered/Resolved]
  - General physical health deterioration [Unknown]
  - Vomiting [Recovered/Resolved]
  - Fatigue [Unknown]
  - Malaise [Recovering/Resolving]
  - Alanine aminotransferase increased [Unknown]
  - Pneumonia [Unknown]
  - Blood creatinine increased [Unknown]

NARRATIVE: CASE EVENT DATE: 20100321
